FAERS Safety Report 4299082-X (Version None)
Quarter: 2004Q1

REPORT INFORMATION
  Report Type: 
  Country: None (occurrence: None)
  Receive Date: 20040218
  Receipt Date: 20040203
  Transmission Date: 20041129
  Serious: Yes (Death)
  Sender: FDA-Public Use
  Company Number: 2004S1000119

PATIENT
  Age: 53 Year
  Sex: Male

DRUGS (1)
  1. CLOZAPINE [Suspect]
     Indication: SCHIZOPHRENIA
     Dosage: 400MG/DAY,ORAL
     Route: 048
     Dates: start: 20020531

REACTIONS (2)
  - CARDIAC DISORDER [None]
  - RESPIRATORY ARREST [None]
